FAERS Safety Report 20608337 (Version 1)
Quarter: 2022Q1

REPORT INFORMATION
  Report Type: Spontaneous
  Country: US (occurrence: None)
  Receive Date: 20220317
  Receipt Date: 20220317
  Transmission Date: 20220423
  Serious: Yes (Death, Other)
  Sender: FDA-Public Use
  Company Number: None

PATIENT
  Age: 68 Year
  Sex: Male
  Weight: 70 kg

DRUGS (1)
  1. BREYANZI [Suspect]
     Active Substance: LISOCABTAGENE MARALEUCEL
     Indication: Diffuse large B-cell lymphoma recurrent
     Dosage: OTHER FREQUENCY : ONCE;?
     Route: 042
     Dates: start: 20211112, end: 20211112

REACTIONS (11)
  - Influenza [None]
  - Cytomegalovirus viraemia [None]
  - Lymphocyte count decreased [None]
  - Confusional state [None]
  - Lethargy [None]
  - Serum ferritin increased [None]
  - C-reactive protein increased [None]
  - Unresponsive to stimuli [None]
  - Depressed level of consciousness [None]
  - Hypotension [None]
  - Respiratory disorder [None]

NARRATIVE: CASE EVENT DATE: 20211122
